FAERS Safety Report 8571332-0 (Version None)
Quarter: 2012Q3

REPORT INFORMATION
  Report Type: 
  Country: None (occurrence: None)
  Receive Date: 20120806
  Receipt Date: 20120726
  Transmission Date: 20120928
  Serious: Yes (Hospitalization)
  Sender: FDA-Public Use
  Company Number: JP-VERTEX PHARMACEUTICALS INC.-AE-2012-011183

PATIENT
  Age: 66 Year
  Sex: Male

DRUGS (8)
  1. PEGINTERFERON ALFA-2B [Concomitant]
     Route: 058
     Dates: start: 20120621
  2. MOTILIUM [Concomitant]
     Route: 048
     Dates: start: 20120610
  3. OMEPRAZOLE [Concomitant]
     Dates: start: 20120611, end: 20120615
  4. PEGINTERFERON ALFA-2B [Concomitant]
     Route: 058
     Dates: start: 20120607, end: 20120614
  5. FERROUS SULFATE TAB [Concomitant]
     Route: 048
     Dates: start: 20120615
  6. RIBAVIRIN [Concomitant]
     Indication: HEPATITIS C
     Route: 048
     Dates: start: 20120607
  7. RABEPRAZOLE SODIUM [Concomitant]
     Route: 048
     Dates: start: 20120616
  8. TELAVIC (TELAPREVIR) [Suspect]
     Indication: HEPATITIS C
     Route: 048
     Dates: start: 20120608

REACTIONS (1)
  - MALLORY-WEISS SYNDROME [None]
